FAERS Safety Report 9356417 (Version 1)
Quarter: 2013Q2

REPORT INFORMATION
  Report Type: Spontaneous
  Country: BM (occurrence: BM)
  Receive Date: 20130619
  Receipt Date: 20130619
  Transmission Date: 20140414
  Serious: Yes (Death, Hospitalization, Other)
  Sender: FDA-Public Use
  Company Number: BM-B.I. PHARMACEUTICALS,INC./RIDGEFIELD-2013-CN-01091CN

PATIENT
  Age: 35 Year
  Sex: Male

DRUGS (1)
  1. PRADAX [Suspect]
     Indication: ATRIAL FIBRILLATION
     Dosage: 300 MG
     Dates: start: 201211

REACTIONS (4)
  - Cerebrovascular accident [Fatal]
  - Haemorrhagic stroke [Unknown]
  - Fall [Unknown]
  - Hemiplegia [Unknown]
